FAERS Safety Report 10924368 (Version 2)
Quarter: 2015Q2

REPORT INFORMATION
  Report Type: Spontaneous
  Country: US (occurrence: US)
  Receive Date: 20150318
  Receipt Date: 20150524
  Transmission Date: 20150821
  Serious: No
  Sender: FDA-Public Use
  Company Number: US-JNJFOC-20131015102

PATIENT

DRUGS (2)
  1. KETOCONAZOLE. [Suspect]
     Active Substance: KETOCONAZOLE
     Indication: ENZYME INHIBITION
     Route: 048
  2. BRENTUXIMAB VEDOTIN [Interacting]
     Active Substance: BRENTUXIMAB VEDOTIN
     Indication: HAEMATOLOGICAL MALIGNANCY
     Route: 042

REACTIONS (2)
  - Alanine aminotransferase increased [Unknown]
  - Drug interaction [Unknown]
